FAERS Safety Report 8389321-8 (Version None)
Quarter: 2012Q2

REPORT INFORMATION
  Report Type: 
  Country: None (occurrence: None)
  Receive Date: 20120528
  Receipt Date: 20120517
  Transmission Date: 20120825
  Serious: No
  Sender: FDA-Public Use
  Company Number: US-BAYER-2012-049812

PATIENT

DRUGS (6)
  1. ACETAMINOPHEN [Concomitant]
     Indication: PAIN IN EXTREMITY
  2. NAPROXEN SODIUM [Suspect]
     Indication: MUSCULOSKELETAL PAIN
  3. ADVIL [Concomitant]
     Indication: PAIN IN EXTREMITY
  4. NAPROXEN SODIUM [Suspect]
     Indication: PAIN IN EXTREMITY
  5. ADVIL [Concomitant]
     Indication: MUSCULOSKELETAL PAIN
  6. ACETAMINOPHEN [Concomitant]
     Indication: MUSCULOSKELETAL PAIN

REACTIONS (3)
  - PAIN [None]
  - PAIN IN EXTREMITY [None]
  - MUSCULOSKELETAL PAIN [None]
